FAERS Safety Report 6327042-3 (Version None)
Quarter: 2009Q3

REPORT INFORMATION
  Report Type: 
  Country: None (occurrence: None)
  Receive Date: 20090825
  Receipt Date: 20090807
  Transmission Date: 20100115
  Serious: Yes (Hospitalization)
  Sender: FDA-Public Use
  Company Number: US-BAYER-200912852BCC

PATIENT
  Age: 31 Year
  Sex: Female
  Weight: 52 kg

DRUGS (1)
  1. ALEVE (CAPLET) [Suspect]
     Indication: SUICIDE ATTEMPT
     Dosage: TOTAL DAILY DOSE: 2200 MG  UNIT DOSE: 220 MG
     Route: 048
     Dates: start: 20090807

REACTIONS (3)
  - BACK PAIN [None]
  - PARAESTHESIA [None]
  - PARAESTHESIA ORAL [None]
